FAERS Safety Report 6199440-2 (Version None)
Quarter: 2009Q2

REPORT INFORMATION
  Report Type: 
  Country: None (occurrence: None)
  Receive Date: 20090519
  Receipt Date: 20090505
  Transmission Date: 20091009
  Serious: Yes (Hospitalization)
  Sender: FDA-Public Use
  Company Number: 266478

PATIENT
  Age: 53 Year
  Sex: Female

DRUGS (8)
  1. CARBOPLATIN [Suspect]
     Dosage: 230 MG, UNKNOWN, INTRAVENOUS
     Route: 042
     Dates: start: 20090422, end: 20090422
  2. PACLITAXEL [Concomitant]
  3. TRIMETON /00072502/ [Concomitant]
  4. RANIDIL [Concomitant]
  5. ASPIRIN [Concomitant]
  6. ISOPTIN [Concomitant]
  7. FEMARA [Concomitant]
  8. NAVOBAN [Concomitant]

REACTIONS (4)
  - ERYTHEMA [None]
  - HYPERSENSITIVITY [None]
  - OEDEMA PERIPHERAL [None]
  - OROPHARYNGEAL PAIN [None]
